FAERS Safety Report 6433696-3 (Version None)
Quarter: 2009Q4

REPORT INFORMATION
  Report Type: 
  Country: None (occurrence: None)
  Receive Date: 20091110
  Receipt Date: 20091029
  Transmission Date: 20100525
  Serious: Yes (Other)
  Sender: FDA-Public Use
  Company Number: CN-ROCHE-665579

PATIENT
  Age: 48 Year
  Sex: Female

DRUGS (1)
  1. PEGASYS [Suspect]
     Route: 065
     Dates: start: 20070601, end: 20071201

REACTIONS (3)
  - HEPATIC CIRRHOSIS [None]
  - PLATELET COUNT DECREASED [None]
  - SPLENOMEGALY [None]
